FAERS Safety Report 6994472-6 (Version None)
Quarter: 2010Q3

REPORT INFORMATION
  Report Type: 
  Country: None (occurrence: None)
  Receive Date: 20100917
  Receipt Date: 20100908
  Transmission Date: 20110219
  Serious: Yes (Other)
  Sender: FDA-Public Use
  Company Number: US-JNJFOC-20100904445

PATIENT
  Age: 61 Year
  Sex: Female
  Weight: 65.77 kg

DRUGS (2)
  1. EXTRA STRENGTH TYLENOL [Suspect]
     Indication: PAIN
     Dosage: 1000MG ONCE A NIGHT FOR 2 NIGHTS, AND AN UNSPECIFIED DOSE ON 1 OTHER NIGHT OVER A MONTH LATER
     Route: 048
  2. EXTRA STRENGTH TYLENOL [Suspect]
     Indication: ARTHRITIS
     Dosage: 1000MG ONCE A NIGHT FOR 2 NIGHTS, AND AN UNSPECIFIED DOSE ON 1 OTHER NIGHT OVER A MONTH LATER
     Route: 048

REACTIONS (3)
  - HALLUCINATION [None]
  - HYPERHIDROSIS [None]
  - SLEEP TERROR [None]
